FAERS Safety Report 7538384-8 (Version None)
Quarter: 2011Q2

REPORT INFORMATION
  Report Type: 
  Country: None (occurrence: None)
  Receive Date: 20110609
  Receipt Date: 20110603
  Transmission Date: 20111010
  Serious: Yes (Hospitalization, Other)
  Sender: FDA-Public Use
  Company Number: US-GILEAD-2011-0038414

PATIENT
  Sex: Female
  Weight: 70.9 kg

DRUGS (4)
  1. TRUVADA [Suspect]
     Indication: HIV INFECTION
     Dates: start: 20110131, end: 20110426
  2. ETRAVIRINE [Concomitant]
     Indication: HIV INFECTION
     Dates: start: 20110426
  3. EMTRICITABINE [Concomitant]
     Indication: HIV INFECTION
     Dates: start: 20110426
  4. RALTEGRAVIR [Concomitant]
     Indication: HIV INFECTION
     Route: 048
     Dates: start: 20110131

REACTIONS (7)
  - FAILURE TO THRIVE [None]
  - VOMITING [None]
  - BLOOD CREATININE INCREASED [None]
  - WEIGHT DECREASED [None]
  - BLOOD PHOSPHORUS DECREASED [None]
  - DECREASED APPETITE [None]
  - DIABETES INSIPIDUS [None]
